FAERS Safety Report 17806618 (Version 1)
Quarter: 2020Q2

REPORT INFORMATION
  Report Type: Spontaneous
  Country: US (occurrence: US)
  Receive Date: 20200519
  Receipt Date: 20200519
  Transmission Date: 20200714
  Serious: Yes (Hospitalization)
  Sender: FDA-Public Use
  Company Number: None

PATIENT
  Sex: Female

DRUGS (4)
  1. FUROSEMIDE, HYDRALAZINE [Concomitant]
  2. LOSARTAN POTASSIUM, METOPROLOL TARTRATE, ACTONEL, PROAIR HFA [Concomitant]
  3. TASIGNA [Suspect]
     Active Substance: NILOTINIB
     Indication: CHRONIC MYELOID LEUKAEMIA
     Route: 048
     Dates: start: 20160114
  4. AMLODIPINE, METOPROLOL SUCCINATE, ALBUTEROL, LATANOPROST, PULMICORT [Concomitant]

REACTIONS (1)
  - Bladder neoplasm [None]
